FAERS Safety Report 5242719-9 (Version None)
Quarter: 2007Q1

REPORT INFORMATION
  Report Type: 
  Country: None (occurrence: None)
  Receive Date: 20070221
  Receipt Date: 20070219
  Transmission Date: 20070707
  Serious: Yes (Other)
  Sender: FDA-Public Use
  Company Number: 2007SP002677

PATIENT
  Sex: Female

DRUGS (1)
  1. FLONASE [Suspect]

REACTIONS (2)
  - DEAFNESS [None]
  - EPISTAXIS [None]
